FAERS Safety Report 25251185 (Version 2)
Quarter: 2025Q3

REPORT INFORMATION
  Report Type: Spontaneous
  Country: US (occurrence: US)
  Receive Date: 20250429
  Receipt Date: 20250917
  Transmission Date: 20251020
  Serious: No
  Sender: TRAVERE THERAPEUTICS
  Company Number: US-TRAVERE-2025TVT00379

PATIENT
  Sex: Male

DRUGS (1)
  1. FILSPARI [Suspect]
     Active Substance: SPARSENTAN
     Indication: IgA nephropathy
     Dosage: LOT NO: 1979025, EXPIRY DATE: 31-AUG-2026
     Route: 048
     Dates: start: 20250120

REACTIONS (3)
  - Peripheral swelling [Recovering/Resolving]
  - Protein urine present [Unknown]
  - Blood potassium increased [None]
